FAERS Safety Report 8616018 (Version 2)
Quarter: 2012Q4

REPORT INFORMATION
  Report Type: 
  Country: US (occurrence: US)
  Receive Date: 20120614
  Receipt Date: 20120927
  Transmission Date: 20130627
  Serious: No
  Sender: FDA-Public Use
  Company Number: US-AMGEN-USASP2012027648

PATIENT
  Age: 59 Year
  Sex: Female
  Weight: 63.95 kg

DRUGS (19)
  1. PROLIA [Suspect]
     Indication: OSTEOPOROSIS POSTMENOPAUSAL
     Dosage: 60 mg, q6mo
     Route: 058
     Dates: start: 20110527, end: 20111212
  2. ADVAIR [Concomitant]
     Dosage: UNK
  3. AMLODIPINE [Concomitant]
     Dosage: UNK
  4. ATENOLOL [Concomitant]
     Dosage: UNK
  5. CALTRATE [Concomitant]
     Dosage: UNK
  6. CLOBETASOL [Concomitant]
     Dosage: UNK
  7. CRESTOR [Concomitant]
     Dosage: UNK
  8. CYCLOBENZAPRINE [Concomitant]
     Dosage: UNK
  9. DIAZEPAM [Concomitant]
     Dosage: UNK
  10. ERGOCALCIFEROL [Concomitant]
     Dosage: UNK
  11. FISH OIL [Concomitant]
     Dosage: UNK
  12. LANSOPRAZOLE [Concomitant]
     Dosage: UNK
  13. LISINOPRIL [Concomitant]
     Dosage: UNK
  14. MULTIVITAMIN                       /00831701/ [Concomitant]
     Dosage: UNK
  15. NASONEX [Concomitant]
     Dosage: UNK
  16. PLAVIX [Concomitant]
     Dosage: UNK
  17. PREDNISONE [Concomitant]
     Dosage: UNK
  18. PROAIR [Concomitant]
     Dosage: UNK
  19. SPIRIVA [Concomitant]
     Dosage: UNK

REACTIONS (3)
  - Skin exfoliation [Recovered/Resolved]
  - Bone pain [Recovered/Resolved]
  - Constipation [Recovered/Resolved]
